FAERS Safety Report 18713681 (Version 2)
Quarter: 2021Q1

REPORT INFORMATION
  Report Type: Spontaneous
  Country: US (occurrence: US)
  Receive Date: 20210107
  Receipt Date: 20210208
  Transmission Date: 20210419
  Serious: Yes (Hospitalization)
  Sender: FDA-Public Use
  Company Number: US-B.I. PHARMACEUTICALS,INC./RIDGEFIELD-2021-BI-074435

PATIENT
  Age: 61 Year
  Sex: Female

DRUGS (1)
  1. SPIRIVA [Suspect]
     Active Substance: TIOTROPIUM BROMIDE MONOHYDRATE
     Indication: CHRONIC OBSTRUCTIVE PULMONARY DISEASE
     Dosage: 1 CAPSULE DAILY
     Route: 065
     Dates: start: 20040104

REACTIONS (8)
  - Nerve injury [Not Recovered/Not Resolved]
  - Adrenal neoplasm [Recovered/Resolved]
  - Pain in extremity [Not Recovered/Not Resolved]
  - Cortisol increased [Recovered/Resolved]
  - Anxiety [Recovered/Resolved]
  - Muscle atrophy [Not Recovered/Not Resolved]
  - Hypoaesthesia [Not Recovered/Not Resolved]
  - Pituitary-dependent Cushing^s syndrome [Recovered/Resolved]

NARRATIVE: CASE EVENT DATE: 2005
